FAERS Safety Report 17826235 (Version 9)
Quarter: 2021Q3

REPORT INFORMATION
  Report Type: Report from Study
  Country: None (occurrence: JP)
  Receive Date: 20200527
  Receipt Date: 20210827
  Transmission Date: 20211014
  Serious: Yes (Death, Hospitalization)
  Sender: FDA-Public Use
  Company Number: JP-ABBVIE-20K-087-3339477-00

PATIENT
  Age: 67 Year
  Sex: Male
  Weight: 59.8 kg

DRUGS (6)
  1. FLUCONAZOLE. [Suspect]
     Active Substance: FLUCONAZOLE
     Indication: INFECTION PROPHYLAXIS
     Route: 065
     Dates: start: 20170727
  2. VENCLEXTA [Suspect]
     Active Substance: VENETOCLAX
     Indication: B-CELL SMALL LYMPHOCYTIC LYMPHOMA
     Route: 048
     Dates: start: 20200312, end: 202003
  3. VENCLEXTA [Suspect]
     Active Substance: VENETOCLAX
     Route: 048
     Dates: start: 20200318, end: 202003
  4. VENCLEXTA [Suspect]
     Active Substance: VENETOCLAX
     Route: 048
     Dates: start: 20200326, end: 202003
  5. VENCLEXTA [Suspect]
     Active Substance: VENETOCLAX
     Route: 048
     Dates: start: 20200408, end: 20200415
  6. VENCLEXTA [Suspect]
     Active Substance: VENETOCLAX
     Route: 048
     Dates: start: 20200401, end: 20200407

REACTIONS (5)
  - Pyrexia [Not Recovered/Not Resolved]
  - B-cell small lymphocytic lymphoma [Fatal]
  - Bronchopulmonary aspergillosis [Recovered/Resolved]
  - C-reactive protein increased [Not Recovered/Not Resolved]
  - Blood urea increased [Recovering/Resolving]

NARRATIVE: CASE EVENT DATE: 20200323
